FAERS Safety Report 17531350 (Version 2)
Quarter: 2020Q2

REPORT INFORMATION
  Report Type: Spontaneous
  Country: DE (occurrence: DE)
  Receive Date: 20200311
  Receipt Date: 20200428
  Transmission Date: 20200713
  Serious: Yes (Life-Threatening, Hospitalization)
  Sender: FDA-Public Use
  Company Number: DE-JNJFOC-20200301236

PATIENT
  Age: 50 Year
  Sex: Female
  Weight: 72 kg

DRUGS (6)
  1. XEPLION [Suspect]
     Active Substance: PALIPERIDONE PALMITATE
     Route: 030
  2. XEPLION [Suspect]
     Active Substance: PALIPERIDONE PALMITATE
     Indication: SCHIZOPHRENIA
     Route: 030
     Dates: start: 2017
  3. XEPLION [Suspect]
     Active Substance: PALIPERIDONE PALMITATE
  4. LORAZEPAM. [Concomitant]
     Active Substance: LORAZEPAM
     Indication: ANXIETY
     Route: 065
     Dates: start: 202002, end: 202003
  5. AMIXIDE [Concomitant]
     Indication: DEPRESSION
     Dosage: 30-0-30-30 MG
     Route: 065
     Dates: start: 2017
  6. QUETIAPINE. [Concomitant]
     Active Substance: QUETIAPINE
     Indication: PRODUCT USED FOR UNKNOWN INDICATION
     Dosage: 0-0-200-0 MG
     Route: 065
     Dates: start: 2019

REACTIONS (2)
  - Subarachnoid haemorrhage [Recovered/Resolved]
  - Psychotic disorder [Unknown]

NARRATIVE: CASE EVENT DATE: 20200227
